FAERS Safety Report 9232799 (Version 1)
Quarter: 2013Q2

REPORT INFORMATION
  Report Type: Spontaneous
  Country: FR (occurrence: None)
  Receive Date: 20130412
  Receipt Date: 20130412
  Transmission Date: 20140414
  Serious: Yes (Hospitalization)
  Sender: FDA-Public Use
  Company Number: 1663607

PATIENT
  Age: 74 Year
  Sex: Male

DRUGS (6)
  1. OXALIPLATIN [Suspect]
     Indication: COLORECTAL CANCER METASTATIC
     Dates: start: 20130211, end: 20130211
  2. CALCIUM LEVOFOLINATE [Suspect]
     Indication: COLORECTAL CANCER METASTATIC
     Dates: start: 20130211, end: 20130211
  3. KYTRIL [Concomitant]
  4. SOLUMEDROL [Concomitant]
  5. VECTIBIX [Concomitant]
  6. MGNESIUM SULFATE [Concomitant]

REACTIONS (8)
  - Malaise [None]
  - Hypotension [None]
  - Feeling hot [None]
  - Dyspnoea [None]
  - Cyanosis [None]
  - Chills [None]
  - Vomiting [None]
  - Hypersensitivity [None]
